FAERS Safety Report 9473935 (Version 1)
Quarter: 2013Q3

REPORT INFORMATION
  Report Type: Spontaneous
  Country: US (occurrence: US)
  Receive Date: 20130823
  Receipt Date: 20130823
  Transmission Date: 20140515
  Serious: No
  Sender: FDA-Public Use
  Company Number: US-BRISTOL-MYERS SQUIBB COMPANY-17157264

PATIENT
  Age: 62 Year
  Sex: Male

DRUGS (9)
  1. SPRYCEL [Suspect]
     Indication: CHRONIC MYELOID LEUKAEMIA
     Route: 048
  2. ADVIL [Concomitant]
  3. BABY ASPIRIN [Concomitant]
  4. CRESTOR [Concomitant]
  5. LEVEMIR [Concomitant]
     Dosage: FORMULATION-LEVEMIR INJ
  6. METOPROLOL [Concomitant]
  7. NOVOLOG [Concomitant]
     Dosage: FORMULATION-NOVOLOG INJ
  8. OMEPRAZOLE [Concomitant]
  9. RAMIPRIL [Concomitant]

REACTIONS (2)
  - Abdominal pain [Unknown]
  - Constipation [Unknown]
